FAERS Safety Report 7573278-3 (Version None)
Quarter: 2011Q2

REPORT INFORMATION
  Report Type: 
  Country: None (occurrence: None)
  Receive Date: 20110627
  Receipt Date: 20110614
  Transmission Date: 20111010
  Serious: Yes (Hospitalization, Other)
  Sender: FDA-Public Use
  Company Number: PHHY2011CA52766

PATIENT
  Sex: Female

DRUGS (3)
  1. ZOLEDRONIC ACID [Suspect]
     Dosage: UNK
     Route: 042
  2. CALCIUM CHANNEL BLOCKERS [Concomitant]
  3. ZOLEDRONIC ACID [Suspect]
     Dosage: UNK
     Route: 042
     Dates: start: 20110608

REACTIONS (2)
  - HYPOTENSION [None]
  - RENAL FAILURE [None]
